FAERS Safety Report 9257254 (Version 1)
Quarter: 2013Q2

REPORT INFORMATION
  Report Type: Spontaneous
  Country: GB (occurrence: None)
  Receive Date: 20130418
  Receipt Date: 20130418
  Transmission Date: 20140414
  Serious: Yes (Other)
  Sender: FDA-Public Use
  Company Number: KAD201304-000452

PATIENT
  Sex: Male

DRUGS (3)
  1. RIBAVIRIN (RIBAVIRIN) [Suspect]
     Indication: HEPATITIS C
  2. PEGYLATED INTERFERON NOS [Suspect]
     Indication: HEPATITIS C
  3. INCIVO (TELAPREVIR) [Suspect]
     Indication: HEPATITIS C

REACTIONS (6)
  - Anaemia [None]
  - Decreased appetite [None]
  - Cognitive disorder [None]
  - Depression [None]
  - Gastrointestinal disorder [None]
  - Insomnia [None]
